FAERS Safety Report 8623460-9 (Version None)
Quarter: 2012Q3

REPORT INFORMATION
  Report Type: 
  Country: None (occurrence: None)
  Receive Date: 20120827
  Receipt Date: 20120808
  Transmission Date: 20120928
  Serious: Yes (Other)
  Sender: FDA-Public Use
  Company Number: GB-JNJFOC-20080701451

PATIENT
  Sex: Female
  Weight: 85 kg

DRUGS (6)
  1. LEFLUNOMIDE [Concomitant]
  2. ACETAMINOPHEN AND CODEINE PHOSPHATE [Concomitant]
  3. REMICADE [Suspect]
     Indication: RHEUMATOID ARTHRITIS
     Route: 042
     Dates: start: 20060613, end: 20070701
  4. AZULFIDINE [Concomitant]
  5. HRT [Concomitant]
  6. DICLOFENAC SODIUM [Concomitant]

REACTIONS (1)
  - BREAST CANCER [None]
